FAERS Safety Report 9034741 (Version 1)
Quarter: 2013Q1

REPORT INFORMATION
  Report Type: Spontaneous
  Country: US (occurrence: None)
  Receive Date: 20130116
  Receipt Date: 20130116
  Transmission Date: 20140127
  Serious: Yes (Hospitalization, Other)
  Sender: FDA-Public Use
  Company Number: None

PATIENT
  Sex: Male
  Weight: 83.92 kg

DRUGS (2)
  1. TAMIFLU 75MG CAPSULES - GENENTECH [Suspect]
     Indication: INFLUENZA LIKE ILLNESS
     Dosage: 75 MG TWICE A DAY
     Dates: start: 20121212
  2. TAMIFLU 75MG CAPSULES - GENENTECH [Suspect]
     Indication: PYREXIA
     Dosage: 75 MG TWICE A DAY
     Dates: start: 20121212

REACTIONS (3)
  - Confusional state [None]
  - Emotional distress [None]
  - Memory impairment [None]
